FAERS Safety Report 4728786-7 (Version None)
Quarter: 2005Q3

REPORT INFORMATION
  Report Type: 
  Country: None (occurrence: None)
  Receive Date: 20050721
  Receipt Date: 20050506
  Transmission Date: 20060218
  Serious: No
  Sender: FDA-Public Use
  Company Number: 2005SP000607

PATIENT
  Age: 72 Year
  Sex: Female

DRUGS (10)
  1. LUNESTA [Suspect]
     Indication: INSOMNIA
     Dosage: 1.5 MG ; HS; ORAL
     Route: 048
     Dates: start: 20050503, end: 20050504
  2. TRANXENE [Suspect]
     Dosage: 7.5 MG; QD
  3. MS CONTIN [Concomitant]
  4. MS CONTIN [Concomitant]
  5. GABITRIL [Concomitant]
  6. TRANXENE [Concomitant]
  7. CALCIUM D [Concomitant]
  8. EVISTA [Concomitant]
  9. SYNTHROID [Concomitant]
  10. ZANATAC [Concomitant]

REACTIONS (2)
  - NAUSEA [None]
  - SOMNOLENCE [None]
